FAERS Safety Report 14060533 (Version 5)
Quarter: 2017Q4

REPORT INFORMATION
  Report Type: Report from Study
  Country: US (occurrence: US)
  Receive Date: 20171006
  Receipt Date: 20171107
  Transmission Date: 20180321
  Serious: Yes (Other)
  Sender: FDA-Public Use
  Company Number: US-BIOGEN-2017BI00462994

PATIENT
  Age: 45 Year
  Sex: Female

DRUGS (6)
  1. ZINBRYTA [Suspect]
     Active Substance: DACLIZUMAB
     Indication: MULTIPLE SCLEROSIS
     Route: 058
     Dates: start: 20170606
  2. DEPAKOTE [Concomitant]
     Active Substance: DIVALPROEX SODIUM
     Indication: PRODUCT USED FOR UNKNOWN INDICATION
     Route: 065
  3. DICLOFENAC [Concomitant]
     Active Substance: DICLOFENAC
     Indication: PRODUCT USED FOR UNKNOWN INDICATION
     Route: 065
  4. VIIBRYD [Concomitant]
     Active Substance: VILAZODONE HYDROCHLORIDE
     Indication: PRODUCT USED FOR UNKNOWN INDICATION
     Route: 065
  5. VITAMIN D2 [Concomitant]
     Active Substance: ERGOCALCIFEROL
     Indication: PRODUCT USED FOR UNKNOWN INDICATION
     Route: 065
  6. PERCOCET [Concomitant]
     Active Substance: ACETAMINOPHEN\OXYCODONE HYDROCHLORIDE
     Indication: PRODUCT USED FOR UNKNOWN INDICATION
     Route: 065

REACTIONS (14)
  - Stress [Not Recovered/Not Resolved]
  - Feeling cold [Recovered/Resolved]
  - Balance disorder [Recovered/Resolved]
  - Extra dose administered [Recovered/Resolved]
  - Multiple sclerosis relapse [Recovered/Resolved]
  - Limb discomfort [Not Recovered/Not Resolved]
  - Photophobia [Not Recovered/Not Resolved]
  - Optic neuritis [Recovered/Resolved]
  - Gait disturbance [Not Recovered/Not Resolved]
  - Visual impairment [Recovered/Resolved]
  - Nausea [Recovered/Resolved]
  - Prescribed overdose [Recovered/Resolved]
  - Blindness [Recovered/Resolved]
  - Malaise [Recovered/Resolved]

NARRATIVE: CASE EVENT DATE: 201709
